FAERS Safety Report 6579997-X (Version None)
Quarter: 2010Q1

REPORT INFORMATION
  Report Type: 
  Country: None (occurrence: None)
  Receive Date: 20100212
  Receipt Date: 20100201
  Transmission Date: 20100710
  Serious: Yes (Hospitalization)
  Sender: FDA-Public Use
  Company Number: DE-WATSON-2010-01278

PATIENT
  Sex: Female

DRUGS (1)
  1. LIDOCAINE HCL [Suspect]
     Indication: RESUSCITATION
     Dosage: 1000 MG, SINGLE
     Route: 042

REACTIONS (5)
  - BRAIN INJURY [None]
  - COMA [None]
  - HYPOXIA [None]
  - MEDICATION ERROR [None]
  - OVERDOSE [None]
